FAERS Safety Report 17352980 (Version 2)
Quarter: 2020Q2

REPORT INFORMATION
  Report Type: Spontaneous
  Country: FR (occurrence: FR)
  Receive Date: 20200131
  Receipt Date: 20200409
  Transmission Date: 20200713
  Serious: Yes (Hospitalization, Other)
  Sender: FDA-Public Use
  Company Number: FR-BRISTOL-MYERS SQUIBB COMPANY-BMS-2019-126296

PATIENT
  Sex: Female

DRUGS (1)
  1. NIVOLUMAB [Suspect]
     Active Substance: NIVOLUMAB
     Indication: METASTATIC MALIGNANT MELANOMA
     Dosage: 480 MILLIGRAM
     Route: 065
     Dates: start: 20180917

REACTIONS (4)
  - Hypoxia [Unknown]
  - Status epilepticus [Unknown]
  - Pneumocystis test positive [Unknown]
  - Malignant neoplasm progression [Unknown]
